FAERS Safety Report 6369460-3 (Version None)
Quarter: 2009Q3

REPORT INFORMATION
  Report Type: 
  Country: None (occurrence: None)
  Receive Date: 20090923
  Receipt Date: 20090914
  Transmission Date: 20100115
  Serious: Yes (Hospitalization)
  Sender: FDA-Public Use
  Company Number: US-BIOGENIDEC-2009BI029578

PATIENT
  Age: 24 Year
  Sex: Male

DRUGS (2)
  1. AVONEX [Suspect]
     Indication: MULTIPLE SCLEROSIS
     Route: 030
     Dates: start: 20040108
  2. REBIF [Concomitant]
     Dates: start: 20060101

REACTIONS (3)
  - BALANCE DISORDER [None]
  - CRANIAL NERVE DISORDER [None]
  - VISUAL IMPAIRMENT [None]
